FAERS Safety Report 26009776 (Version 2)
Quarter: 2025Q4

REPORT INFORMATION
  Report Type: Spontaneous
  Country: US (occurrence: US)
  Receive Date: 20251107
  Receipt Date: 20251126
  Transmission Date: 20260118
  Serious: No
  Sender: SANDOZ
  Company Number: US-SANDOZ-SDZ2025US082959

PATIENT
  Sex: Female

DRUGS (1)
  1. ESTRADIOL [Suspect]
     Active Substance: ESTRADIOL
     Indication: Product used for unknown indication
     Dosage: UNK,STRENGTH 0.025MG/1D 4TTSM
     Route: 062
     Dates: start: 2025

REACTIONS (3)
  - Drug dose omission by device [Unknown]
  - Device adhesion issue [Unknown]
  - Device defective [Unknown]

NARRATIVE: CASE EVENT DATE: 20251104
